FAERS Safety Report 14475024 (Version 2)
Quarter: 2018Q1

REPORT INFORMATION
  Report Type: Spontaneous
  Country: US (occurrence: US)
  Receive Date: 20180201
  Receipt Date: 20180206
  Transmission Date: 20180509
  Serious: Yes (Death, Hospitalization, Other)
  Sender: FDA-Public Use
  Company Number: US-PFIZER INC-2018043478

PATIENT
  Age: 54 Year
  Sex: Female
  Weight: 58.97 kg

DRUGS (5)
  1. XARELTO [Concomitant]
     Active Substance: RIVAROXABAN
     Indication: ATRIAL FIBRILLATION
     Dosage: 20 MG, 1X/DAY(ONCE A DAY AT NIGHT)
     Route: 048
     Dates: start: 2017
  2. CARVEDILOL. [Concomitant]
     Active Substance: CARVEDILOL
     Indication: CARDIAC DISORDER
     Dosage: UNK
     Dates: start: 2017
  3. AZATHIOPRINE. [Interacting]
     Active Substance: AZATHIOPRINE
     Indication: IMMUNOSUPPRESSION
     Dosage: 50 MG, 1X/DAY
  4. VFEND [Suspect]
     Active Substance: VORICONAZOLE
     Indication: LUNG DISORDER
     Dosage: 200 MG, 2X/DAY
     Route: 048
     Dates: start: 20170623, end: 20180123
  5. AZATHIOPRINE. [Interacting]
     Active Substance: AZATHIOPRINE
     Dosage: 50 MG, 2X/DAY
     Dates: start: 2016

REACTIONS (25)
  - Pericardial effusion [Unknown]
  - Fall [Unknown]
  - Hip fracture [Unknown]
  - Polymyositis [Unknown]
  - Pulmonary mycosis [Recovered/Resolved]
  - Appetite disorder [Unknown]
  - Lymphadenopathy [Unknown]
  - Musculoskeletal pain [Unknown]
  - Drug interaction [Unknown]
  - Diaphragm muscle weakness [Fatal]
  - Pleural effusion [Unknown]
  - Abdominal discomfort [Unknown]
  - Asthenia [Unknown]
  - Rosacea [Unknown]
  - Neck pain [Unknown]
  - Mobility decreased [Unknown]
  - Pneumonia pseudomonal [Unknown]
  - Pneumothorax [Unknown]
  - Connective tissue inflammation [Fatal]
  - Myositis [Fatal]
  - Ascites [Unknown]
  - Dermatomyositis [Fatal]
  - Condition aggravated [Fatal]
  - Lung disorder [Unknown]
  - Visual impairment [Unknown]

NARRATIVE: CASE EVENT DATE: 2014
